FAERS Safety Report 6032181-0 (Version None)
Quarter: 2008Q4

REPORT INFORMATION
  Report Type: 
  Country: None (occurrence: None)
  Receive Date: 20081224
  Receipt Date: 20081217
  Transmission Date: 20090506
  Serious: Yes (Hospitalization)
  Sender: FDA-Public Use
  Company Number: AEGBR200800192

PATIENT
  Age: 7 Year
  Sex: Female

DRUGS (6)
  1. IMMUNE GLOBULIN INTRAVENOUS (HUMAN) [Suspect]
     Indication: EVANS SYNDROME
     Dosage: IV
     Route: 042
  2. CYCLOSPORINE [Suspect]
     Indication: EVANS SYNDROME
  3. MYCOPHENOLATE MOFETIL [Suspect]
     Indication: EVANS SYNDROME
  4. PREDNISOLONE [Suspect]
     Indication: EVANS SYNDROME
  5. RITUXIMAB (RITUXIMAB) [Suspect]
     Indication: EVANS SYNDROME
     Dosage: 375 MG/M2; IV
     Route: 042
  6. RITUXIMAB (RITUXIMAB) [Suspect]
     Indication: LYMPHOPROLIFERATIVE DISORDER
     Dosage: 375 MG/M2; IV
     Route: 042

REACTIONS (10)
  - ANOREXIA [None]
  - BONE MARROW TRANSPLANT [None]
  - COUGH [None]
  - DILATATION VENTRICULAR [None]
  - LUNG DISORDER [None]
  - LYMPHOPROLIFERATIVE DISORDER [None]
  - OXYGEN SATURATION DECREASED [None]
  - PULMONARY HYPERTENSION [None]
  - RESPIRATORY DISORDER [None]
  - TRICUSPID VALVE INCOMPETENCE [None]
